FAERS Safety Report 6697808-9 (Version None)
Quarter: 2010Q2

REPORT INFORMATION
  Report Type: 
  Country: None (occurrence: None)
  Receive Date: 20100423
  Receipt Date: 20100408
  Transmission Date: 20101027
  Serious: Yes (Other)
  Sender: FDA-Public Use
  Company Number: 2010001509

PATIENT
  Age: 60 Year
  Sex: Male

DRUGS (5)
  1. TARCEVA [Suspect]
     Indication: DRUG USE FOR UNKNOWN INDICATION
     Dosage: ORAL
     Route: 048
     Dates: start: 20090328
  2. NEULASTA [Suspect]
     Indication: DRUG USE FOR UNKNOWN INDICATION
     Dosage: 6 MG, SUBCUTANEOUS
     Route: 058
     Dates: start: 20081124, end: 20090429
  3. BEVACIZUMAB [Suspect]
     Indication: DRUG USE FOR UNKNOWN INDICATION
     Dosage: 1130 MG, QD, INTRAVENOUS
     Route: 042
     Dates: start: 20081124, end: 20090429
  4. CISPLATIN [Suspect]
     Indication: DRUG USE FOR UNKNOWN INDICATION
     Dosage: 45 MG, QD, INTRAVENOUS
     Route: 042
     Dates: start: 20081124, end: 20090429
  5. DOCETAXEL [Suspect]
     Indication: DRUG USE FOR UNKNOWN INDICATION
     Dosage: 145 MG, QD, INTRAVENOUS
     Route: 042
     Dates: start: 20081124, end: 20090429

REACTIONS (5)
  - AORTIC STENOSIS [None]
  - CARDIAC MURMUR [None]
  - DILATATION VENTRICULAR [None]
  - EJECTION FRACTION DECREASED [None]
  - VENTRICULAR HYPOKINESIA [None]
